FAERS Safety Report 18347307 (Version 1)
Quarter: 2020Q4

REPORT INFORMATION
  Report Type: Other
  Country: CN (occurrence: CN)
  Receive Date: 20201005
  Receipt Date: 20201005
  Transmission Date: 20210114
  Serious: Yes (Other)
  Sender: FDA-Public Use
  Company Number: CN-ROCHE-2684644

PATIENT

DRUGS (1)
  1. CAPECITABINE. [Suspect]
     Active Substance: CAPECITABINE
     Indication: GASTRIC NEOPLASM
     Dosage: ONCE IN THE MORNING AND ONCE IN THE EVENING
     Route: 048

REACTIONS (1)
  - Gastrointestinal disorder [Unknown]
